FAERS Safety Report 4744180-7 (Version None)
Quarter: 2005Q3

REPORT INFORMATION
  Report Type: 
  Country: None (occurrence: None)
  Receive Date: 20050809
  Receipt Date: 20050729
  Transmission Date: 20060218
  Serious: Yes (Hospitalization)
  Sender: FDA-Public Use
  Company Number: KII-2005-0017821

PATIENT
  Age: 3 Year
  Sex: Male

DRUGS (1)
  1. OXYCONTIN [Suspect]
     Dosage: SEE TEXT, ORAL
     Route: 048
     Dates: start: 20050705

REACTIONS (4)
  - ACCIDENTAL DRUG INTAKE BY CHILD [None]
  - HYPERHIDROSIS [None]
  - LETHARGY [None]
  - VOMITING [None]
